FAERS Safety Report 6106846-6 (Version None)
Quarter: 2009Q1

REPORT INFORMATION
  Report Type: 
  Country: None (occurrence: None)
  Receive Date: 20090304
  Receipt Date: 20090219
  Transmission Date: 20090719
  Serious: Yes (Other)
  Sender: FDA-Public Use
  Company Number: GXKR2009TW02372

PATIENT
  Age: 9 Year
  Sex: Female

DRUGS (4)
  1. ACETAMINOPHEN [Suspect]
     Indication: PYREXIA
     Dosage: 120 MG, ORAL; 300 MG, ORAL
     Route: 048
  2. ACETAMINOPHEN [Suspect]
     Indication: TOOTHACHE
     Dosage: 120 MG, ORAL; 300 MG, ORAL
     Route: 048
  3. ACETAMINOPHEN [Suspect]
     Indication: UPPER RESPIRATORY TRACT INFECTION
     Dosage: 120 MG, ORAL; 300 MG, ORAL
     Route: 048
  4. MEFENAMIC ACID [Concomitant]

REACTIONS (2)
  - ANAPHYLACTOID REACTION [None]
  - SHOCK [None]
